FAERS Safety Report 7555586-5 (Version None)
Quarter: 2011Q2

REPORT INFORMATION
  Report Type: 
  Country: None (occurrence: None)
  Receive Date: 20110617
  Receipt Date: 20010307
  Transmission Date: 20111010
  Serious: Yes (Hospitalization)
  Sender: FDA-Public Use
  Company Number: PHEH2001US02222

PATIENT
  Sex: Male

DRUGS (6)
  1. EXELON [Suspect]
     Indication: DEMENTIA ALZHEIMER'S TYPE
     Dosage: 4.5 MG, BID
     Route: 048
     Dates: start: 20000814
  2. COUMADIN [Concomitant]
     Dosage: 2.5 MG, QD
  3. LANOXIN [Concomitant]
     Dosage: .125 MG, QD
  4. ATENOLOL [Concomitant]
     Dosage: 50 MG, QD
  5. ULTRAM [Concomitant]
     Dosage: 50 MG, QD
  6. REMERON [Concomitant]
     Dosage: 20 MG, QD

REACTIONS (3)
  - PNEUMONIA [None]
  - ASTHENIA [None]
  - DYSPNOEA [None]
